FAERS Safety Report 8186460-1 (Version None)
Quarter: 2012Q1

REPORT INFORMATION
  Report Type: 
  Country: None (occurrence: None)
  Receive Date: 20120306
  Receipt Date: 20120227
  Transmission Date: 20120608
  Serious: Yes (Other)
  Sender: FDA-Public Use
  Company Number: BR-BAYER-2012-001487

PATIENT
  Age: 30 Year
  Sex: Female

DRUGS (2)
  1. INTRAUTERINE DEVICE [Concomitant]
     Dosage: UNK
     Dates: end: 20110101
  2. ESTRADIOL VALERATE/DIENOGEST [Suspect]
     Indication: CONTRACEPTION
     Dosage: UNK UNK, QD
     Route: 048
     Dates: start: 20111001, end: 20111221

REACTIONS (3)
  - AMENORRHOEA [None]
  - PREGNANCY ON ORAL CONTRACEPTIVE [None]
  - GESTATIONAL HYPERTENSION [None]
